FAERS Safety Report 8612901 (Version 2)
Quarter: 2014Q1

REPORT INFORMATION
  Report Type: Spontaneous
  Country: US (occurrence: None)
  Receive Date: 20120323
  Receipt Date: 20130305
  Transmission Date: 20141002
  Serious: Yes (Hospitalization)
  Sender: FDA-Public Use
  Company Number: 163-21880-11080908

PATIENT
  Age: 60 Year
  Sex: Male

DRUGS (8)
  1. REVLIMID [Suspect]
     Indication: PLASMA CELL MYELOMA
     Dosage: 25 MG, 1 IN 1 D, PO ; 10 MG, QD ON DAYS 1-21, PO
     Route: 048
     Dates: start: 201006, end: 2011
  2. VELCADE [Concomitant]
  3. ZOFRAN (ONDANSETRON HYDROCHLORIDE) (TABLETS) [Concomitant]
  4. BACTROBAN (MUPIROCIN) (OINTMENT) [Concomitant]
  5. LASIX (FUROSEMIDE) (TABLETS) [Concomitant]
  6. KLOR-CON (POTASSIUM CHLORIDE) (TABLETS) [Concomitant]
  7. SKELAXIN (METAXALONE) (TABLETS) [Concomitant]
  8. NORCO (VICODIN) (TABLETS) [Concomitant]

REACTIONS (2)
  - Plasma cell myeloma [None]
  - Plasma cell myeloma [None]
